FAERS Safety Report 6265238-X (Version None)
Quarter: 2009Q3

REPORT INFORMATION
  Report Type: 
  Country: None (occurrence: None)
  Receive Date: 20090709
  Receipt Date: 20090709
  Transmission Date: 20100115
  Serious: Yes (Hospitalization)
  Sender: FDA-Public Use
  Company Number: None

PATIENT
  Sex: Female
  Weight: 71.4 kg

DRUGS (6)
  1. CYCLOPHOSPHAMIDE [Suspect]
     Dosage: 1100 MG
  2. DOXORUBICIN HCL [Suspect]
     Dosage: 110 MG
  3. MAGIC MOUTHWASH [Concomitant]
  4. NEXIUM [Concomitant]
  5. PERCOCET [Concomitant]
  6. SYNTHROID [Concomitant]

REACTIONS (20)
  - ANAEMIA [None]
  - ANAL HAEMORRHAGE [None]
  - ASTHENIA [None]
  - BLOOD PRESSURE DIASTOLIC DECREASED [None]
  - CHILLS [None]
  - DIARRHOEA [None]
  - FATIGUE [None]
  - FEBRILE NEUTROPENIA [None]
  - HAEMATOCHEZIA [None]
  - HAEMORRHOIDS [None]
  - INSOMNIA [None]
  - MIDDLE INSOMNIA [None]
  - MOVEMENT DISORDER [None]
  - NAUSEA [None]
  - ORAL PAIN [None]
  - PAIN [None]
  - PAIN IN EXTREMITY [None]
  - PAINFUL DEFAECATION [None]
  - PANCYTOPENIA [None]
  - PROCTALGIA [None]
